FAERS Safety Report 7788341-1 (Version None)
Quarter: 2011Q3

REPORT INFORMATION
  Report Type: 
  Country: None (occurrence: None)
  Receive Date: 20110927
  Receipt Date: 20110921
  Transmission Date: 20111222
  Serious: Yes (Hospitalization)
  Sender: FDA-Public Use
  Company Number: GER/UKI/11/0021280

PATIENT
  Age: 91 Year
  Sex: Male

DRUGS (5)
  1. SIMVASTATIN [Concomitant]
  2. FUROSEMIDE [Concomitant]
  3. ZOPICLONE (ZOPICLONE) [Concomitant]
  4. RISPERIDONE [Suspect]
     Indication: DEMENTIA
     Dosage: 0.5 MG, 1 IN 1 D, ORAL
     Route: 048
     Dates: end: 20110904
  5. OMEPRAZOLE [Concomitant]

REACTIONS (5)
  - CONDITION AGGRAVATED [None]
  - HYPOTHERMIA [None]
  - ATRIOVENTRICULAR BLOCK COMPLETE [None]
  - DEMENTIA [None]
  - GENERAL PHYSICAL HEALTH DETERIORATION [None]
